FAERS Safety Report 24969506 (Version 1)
Quarter: 2025Q1

REPORT INFORMATION
  Report Type: Spontaneous
  Country: US (occurrence: US)
  Receive Date: 20250214
  Receipt Date: 20250214
  Transmission Date: 20250409
  Serious: Yes (Other)
  Sender: TEVA
  Company Number: US-TEVA-VS-3295773

PATIENT
  Age: 34 Year
  Sex: Female

DRUGS (3)
  1. UZEDY [Suspect]
     Active Substance: RISPERIDONE
     Indication: Product used for unknown indication
     Dosage: 100/0.28MG/ML (DOSE INCREASED FROM 100MG TO 125MG)
     Route: 065
     Dates: start: 202409
  2. UZEDY [Suspect]
     Active Substance: RISPERIDONE
     Dosage: 125/0.35MG/ML
     Route: 065
     Dates: start: 20250117
  3. HYDROXYZINE [Concomitant]
     Active Substance: HYDROXYZINE HYDROCHLORIDE
     Indication: Anxiety
     Route: 065

REACTIONS (10)
  - Hallucination, auditory [Not Recovered/Not Resolved]
  - Abnormal behaviour [Not Recovered/Not Resolved]
  - Grunting [Not Recovered/Not Resolved]
  - Aggression [Not Recovered/Not Resolved]
  - Condition aggravated [Not Recovered/Not Resolved]
  - Screaming [Not Recovered/Not Resolved]
  - Soliloquy [Not Recovered/Not Resolved]
  - Drug ineffective [Not Recovered/Not Resolved]
  - Anger [Not Recovered/Not Resolved]
  - Loss of personal independence in daily activities [Not Recovered/Not Resolved]
